FAERS Safety Report 5095251-X (Version None)
Quarter: 2006Q3

REPORT INFORMATION
  Report Type: 
  Country: None (occurrence: None)
  Receive Date: 20060901
  Receipt Date: 20060828
  Transmission Date: 20061208
  Serious: Yes (Death)
  Sender: FDA-Public Use
  Company Number: PHRM2006FR02409

PATIENT
  Age: 66 Year
  Sex: Male

DRUGS (6)
  1. COMTAN [Suspect]
     Indication: PARKINSON'S DISEASE
     Dosage: UNK, UNK
     Route: 048
     Dates: end: 20060704
  2. MODOPAR [Suspect]
     Indication: PARKINSON'S DISEASE
     Dosage: UNK, UNK
     Route: 048
     Dates: end: 20060704
  3. TRIVASTAL [Suspect]
     Indication: PARKINSON'S DISEASE
     Dosage: 100 MG - 100 MG - 50 MG
     Route: 048
     Dates: start: 20060705
  4. STABLON [Suspect]
     Dosage: UNK, UNK
     Route: 048
     Dates: end: 20060704
  5. PAROXETINE HYDROCHLORIDE [Suspect]
     Dosage: 20 MG, QD
     Route: 048
     Dates: start: 20060705
  6. STALEVO 100 [Suspect]
     Indication: PARKINSON'S DISEASE
     Dosage: 1 DF, 8QD
     Route: 048
     Dates: start: 20060705

REACTIONS (8)
  - AGITATION [None]
  - CARDIAC ARREST [None]
  - CONFUSIONAL STATE [None]
  - CYANOSIS [None]
  - DYSKINESIA [None]
  - LOSS OF CONSCIOUSNESS [None]
  - MUSCULOSKELETAL STIFFNESS [None]
  - NEUROLOGICAL SYMPTOM [None]
